FAERS Safety Report 17299128 (Version 1)
Quarter: 2020Q1

REPORT INFORMATION
  Report Type: Spontaneous
  Country: US (occurrence: US)
  Receive Date: 20200121
  Receipt Date: 20200121
  Transmission Date: 20200409
  Serious: No
  Sender: FDA-Public Use
  Company Number: US-CUMBERLAND-2020-US-000005

PATIENT
  Sex: Male

DRUGS (3)
  1. KRISTALOSE [Suspect]
     Active Substance: LACTULOSE
  2. LENVIMA [Suspect]
     Active Substance: LENVATINIB
     Dates: start: 20191220
  3. LENVIMA [Suspect]
     Active Substance: LENVATINIB
     Dates: start: 20191106, end: 20191123

REACTIONS (4)
  - Fatigue [Unknown]
  - Weight decreased [Unknown]
  - Diarrhoea [Unknown]
  - Decreased appetite [Unknown]
